FAERS Safety Report 7987428-8 (Version None)
Quarter: 2011Q4

REPORT INFORMATION
  Report Type: 
  Country: None (occurrence: None)
  Receive Date: 20111216
  Receipt Date: 20110411
  Transmission Date: 20120403
  Serious: No
  Sender: FDA-Public Use
  Company Number: US-BRISTOL-MYERS SQUIBB COMPANY-15665185

PATIENT
  Age: 48 Year
  Sex: Female

DRUGS (2)
  1. LITHIUM CARBONATE [Suspect]
  2. ABILIFY [Suspect]
     Dosage: FROM 2 MG TO 10 MG

REACTIONS (1)
  - TARDIVE DYSKINESIA [None]
